FAERS Safety Report 6915092-5 (Version None)
Quarter: 2010Q3

REPORT INFORMATION
  Report Type: 
  Country: None (occurrence: None)
  Receive Date: 20100809
  Receipt Date: 20100728
  Transmission Date: 20110219
  Serious: Yes (Other)
  Sender: FDA-Public Use
  Company Number: BR-PFIZER INC-2010090283

PATIENT
  Age: 51 Year
  Sex: Female
  Weight: 69 kg

DRUGS (10)
  1. CHAMPIX [Suspect]
     Indication: TOBACCO USER
     Dosage: 0.5 MG, 1X/DAY
     Route: 048
     Dates: start: 20100718, end: 20100701
  2. CHAMPIX [Suspect]
     Dosage: UNK, 2 TABLETS
     Route: 048
     Dates: start: 20100701, end: 20100701
  3. CHAMPIX [Suspect]
     Dosage: UNK, 1 TABLET
     Route: 048
     Dates: start: 20100701
  4. PARACETAMOL [Concomitant]
     Indication: FIBROMYALGIA
     Dosage: UNK
  5. CODEINE [Concomitant]
     Indication: FIBROMYALGIA
     Dosage: UNK
  6. MIOSAN [Concomitant]
     Indication: FIBROMYALGIA
     Dosage: UNK
  7. TRAZODONE [Concomitant]
     Indication: ANXIETY
     Dosage: UNK
  8. CLONAZEPAM [Concomitant]
     Indication: ANXIETY
     Dosage: UNK
  9. LEVOTHYROXINE SODIUM [Concomitant]
     Indication: THYROID DISORDER
     Dosage: UNK
  10. SOY ISOFLAVONES [Concomitant]
     Indication: MENOPAUSE
     Dosage: UNK

REACTIONS (1)
  - BLOOD PRESSURE INCREASED [None]
